FAERS Safety Report 25794448 (Version 1)
Quarter: 2025Q3

REPORT INFORMATION
  Report Type: Report from Study
  Country: US (occurrence: US)
  Receive Date: 20250912
  Receipt Date: 20250912
  Transmission Date: 20251020
  Serious: No
  Sender: SUNOVION
  Company Number: US-SUMITOMO PHARMA SWITZERLAND GMBH-2025SPA005651

PATIENT
  Age: 75 Year
  Sex: Male

DRUGS (4)
  1. ORGOVYX [Suspect]
     Active Substance: RELUGOLIX
     Indication: Prostate cancer
     Dosage: 120 MG, QD
     Route: 048
     Dates: start: 20250409
  2. ATENOLOL [Concomitant]
     Active Substance: ATENOLOL
  3. METFORMIN [Concomitant]
     Active Substance: METFORMIN HYDROCHLORIDE
  4. XTANDI [Concomitant]
     Active Substance: ENZALUTAMIDE

REACTIONS (2)
  - Hypocalcaemia [Unknown]
  - Incorrect dose administered [Recovered/Resolved]
